FAERS Safety Report 6645332-1 (Version None)
Quarter: 2010Q1

REPORT INFORMATION
  Report Type: 
  Country: None (occurrence: None)
  Receive Date: 20100322
  Receipt Date: 20100311
  Transmission Date: 20100710
  Serious: Yes (Hospitalization)
  Sender: FDA-Public Use
  Company Number: DE-AMGEN-US399756

PATIENT
  Sex: Male
  Weight: 79 kg

DRUGS (8)
  1. ENBREL [Suspect]
     Indication: RHEUMATOID ARTHRITIS
     Route: 058
     Dates: start: 20090629, end: 20091201
  2. TRAMADOL [Concomitant]
     Dosage: 20 DROPLETS WHEN NEEDED
     Route: 048
     Dates: start: 20090101
  3. OMEPRAZOLE [Concomitant]
     Route: 048
     Dates: start: 20060101
  4. PREDNISOLONE [Concomitant]
     Indication: RHEUMATOID ARTHRITIS
     Route: 048
     Dates: start: 20020101, end: 20090701
  5. PREDNISOLONE [Concomitant]
     Route: 048
     Dates: start: 20090701, end: 20090801
  6. PREDNISOLONE [Concomitant]
     Route: 048
     Dates: start: 20090801, end: 20090801
  7. PREDNISOLONE [Concomitant]
     Route: 048
     Dates: start: 20090801
  8. DICLOFENAC [Concomitant]
     Indication: RHEUMATOID ARTHRITIS
     Route: 048
     Dates: start: 20060101

REACTIONS (2)
  - CONDITION AGGRAVATED [None]
  - RHEUMATOID ARTHRITIS [None]
